FAERS Safety Report 19399631 (Version 1)
Quarter: 2021Q2

REPORT INFORMATION
  Report Type: Spontaneous
  Country: US (occurrence: US)
  Receive Date: 20210610
  Receipt Date: 20210610
  Transmission Date: 20210717
  Serious: Yes (Other)
  Sender: FDA-Public Use
  Company Number: US-PROCTER+GAMBLE-PH21004378

PATIENT
  Age: 33 Year
  Sex: Male

DRUGS (1)
  1. DEXTROMETHORPHAN [Suspect]
     Active Substance: DEXTROMETHORPHAN
     Dosage: UNK

REACTIONS (4)
  - Drug use disorder [Unknown]
  - Agitation [Recovered/Resolved]
  - Toxicity to various agents [Unknown]
  - Hyperchloraemia [Unknown]
